FAERS Safety Report 19851714 (Version 1)
Quarter: 2021Q3

REPORT INFORMATION
  Report Type: Spontaneous
  Country: JP (occurrence: JP)
  Receive Date: 20210917
  Receipt Date: 20210917
  Transmission Date: 20211014
  Serious: Yes (Death)
  Sender: FDA-Public Use
  Company Number: JP-BAXTER-2021BAX028864

PATIENT
  Sex: Male

DRUGS (5)
  1. ANTI?HUMAN THYMOCYTE IMMUNOGLOBULIN, EQUINE [Concomitant]
     Indication: HEART TRANSPLANT REJECTION
     Route: 065
  2. ENDOXAN 1G [Suspect]
     Active Substance: CYCLOPHOSPHAMIDE
     Indication: HEART TRANSPLANT REJECTION
     Route: 065
  3. RITUXIMAB (GENETICAL RECOMBINATION) [Concomitant]
     Active Substance: RITUXIMAB
     Indication: HEART TRANSPLANT REJECTION
     Route: 065
  4. MYCOPHENOLATE MOFETIL. [Concomitant]
     Active Substance: MYCOPHENOLATE MOFETIL
     Indication: HEART TRANSPLANT REJECTION
     Route: 065
  5. HUMAN NORMAL IMMUNOGLOBULIN [Concomitant]
     Active Substance: HUMAN IMMUNOGLOBULIN G
     Indication: HEART TRANSPLANT REJECTION
     Route: 065

REACTIONS (1)
  - Herpes zoster [Fatal]
